FAERS Safety Report 4417410-9 (Version None)
Quarter: 2004Q3

REPORT INFORMATION
  Report Type: 
  Country: None (occurrence: None)
  Receive Date: 20040803
  Receipt Date: 20040727
  Transmission Date: 20050211
  Serious: Yes (Other)
  Sender: FDA-Public Use
  Company Number: 2004225508US

PATIENT
  Age: 52 Year
  Sex: Male

DRUGS (1)
  1. FRAGMIN [Suspect]
     Indication: DEEP VEIN THROMBOSIS
     Dosage: 5000 U, DAILY, SUBCUTANEOUS
     Route: 058

REACTIONS (3)
  - CARDIOVASCULAR DISORDER [None]
  - HAEMORRHAGE [None]
  - PRIAPISM [None]
